FAERS Safety Report 15320063 (Version 4)
Quarter: 2020Q4

REPORT INFORMATION
  Report Type: Spontaneous
  Country: US (occurrence: US)
  Receive Date: 20180827
  Receipt Date: 20201012
  Transmission Date: 20210113
  Serious: No
  Sender: FDA-Public Use
  Company Number: US-PFIZER INC-2018340331

PATIENT
  Age: 3 Year
  Sex: Male
  Weight: 25 kg

DRUGS (3)
  1. GENOTROPIN MQ [Suspect]
     Active Substance: SOMATROPIN
     Dosage: 1 MG, DAILY
     Dates: start: 20151118
  2. GENOTROPIN MQ [Suspect]
     Active Substance: SOMATROPIN
     Indication: HYPOCHONDROPLASIA
     Dosage: 0.8 MG, DAILY
     Dates: start: 20151118
  3. GENOTROPIN MQ [Suspect]
     Active Substance: SOMATROPIN
     Dosage: 0.1 MG, UNK
     Dates: start: 2014

REACTIONS (7)
  - Product use in unapproved indication [Unknown]
  - Off label use [Unknown]
  - Bone density increased [Recovered/Resolved]
  - Abnormal behaviour [Unknown]
  - Blood chromogranin A increased [Recovered/Resolved]
  - Personality disorder [Unknown]
  - Insulin-like growth factor increased [Recovered/Resolved]

NARRATIVE: CASE EVENT DATE: 2014
